FAERS Safety Report 13008222 (Version 1)
Quarter: 2016Q4

REPORT INFORMATION
  Report Type: Spontaneous
  Country: US (occurrence: US)
  Receive Date: 20161208
  Receipt Date: 20161208
  Transmission Date: 20170207
  Serious: Yes (Other)
  Sender: FDA-Public Use
  Company Number: US-APOTEX-2016AP015339

PATIENT
  Sex: Male

DRUGS (2)
  1. LITHIUM CARBONATE. [Suspect]
     Active Substance: LITHIUM CARBONATE
     Indication: BIPOLAR DISORDER
     Dosage: 300 MG, BID
     Route: 065
  2. LITHIUM CARBONATE. [Suspect]
     Active Substance: LITHIUM CARBONATE
     Dosage: UNK
     Route: 065

REACTIONS (5)
  - Hypothyroidism [Unknown]
  - Thrombocytopenia [Unknown]
  - White blood cell count increased [Unknown]
  - Nausea [Recovered/Resolved]
  - Tremor [Unknown]
